FAERS Safety Report 18822347 (Version 2)
Quarter: 2021Q1

REPORT INFORMATION
  Report Type: Spontaneous
  Country: FR (occurrence: FR)
  Receive Date: 20210202
  Receipt Date: 20210304
  Transmission Date: 20210419
  Serious: Yes (Death)
  Sender: FDA-Public Use
  Company Number: FR-PFIZER INC-2021083753

PATIENT
  Sex: Male

DRUGS (3)
  1. VORICONAZOLE. [Suspect]
     Active Substance: VORICONAZOLE
     Dosage: UNK
     Route: 048
  2. AMPHOTERICIN B. [Suspect]
     Active Substance: AMPHOTERICIN B
     Dosage: UNK
  3. VORICONAZOLE. [Suspect]
     Active Substance: VORICONAZOLE
     Dosage: UNK
     Route: 042

REACTIONS (1)
  - Death [Fatal]
